FAERS Safety Report 21585140 (Version 1)
Quarter: 2022Q4

REPORT INFORMATION
  Report Type: Spontaneous
  Country: US (occurrence: US)
  Receive Date: 20221111
  Receipt Date: 20221111
  Transmission Date: 20230112
  Serious: Yes (Other)
  Sender: FDA-Public Use
  Company Number: US-BAYER-2022A154010

PATIENT

DRUGS (1)
  1. KERENDIA [Suspect]
     Active Substance: FINERENONE
     Dosage: UNK
     Dates: start: 2022, end: 2022

REACTIONS (1)
  - Glomerular filtration rate decreased [None]

NARRATIVE: CASE EVENT DATE: 20220101
